FAERS Safety Report 8448513-X (Version None)
Quarter: 2012Q2

REPORT INFORMATION
  Report Type: 
  Country: None (occurrence: None)
  Receive Date: 20120619
  Receipt Date: 20120607
  Transmission Date: 20120825
  Serious: Yes (Death)
  Sender: FDA-Public Use
  Company Number: GR-PFIZER INC-2010146589

PATIENT
  Sex: Male

DRUGS (16)
  1. QUETIAPINE [Suspect]
     Indication: PSYCHOTIC DISORDER
  2. PIPERACILLIN AND TAZOBACTAM [Suspect]
  3. AMANTADINE HCL [Suspect]
     Indication: PSYCHOTIC DISORDER
  4. CARBIDOPA [Suspect]
     Indication: PSYCHOTIC DISORDER
  5. PIRACETAM [Suspect]
     Indication: PSYCHOTIC DISORDER
  6. HEPARIN [Suspect]
  7. AMANTADINE HCL [Suspect]
     Indication: PARKINSON'S DISEASE
  8. QUETIAPINE [Suspect]
     Indication: PARKINSON'S DISEASE
  9. LEVODOPA [Suspect]
     Indication: PSYCHOTIC DISORDER
  10. CARBIDOPA [Suspect]
     Indication: PARKINSON'S DISEASE
  11. ROTIGOTINE [Suspect]
     Indication: PSYCHOTIC DISORDER
  12. PRAMIPEXOLE [Suspect]
     Indication: PARKINSON'S DISEASE
  13. PRAMINE [Suspect]
     Indication: PSYCHOTIC DISORDER
  14. LEVODOPA [Suspect]
     Indication: PARKINSON'S DISEASE
  15. PIRACETAM [Suspect]
     Indication: PARKINSON'S DISEASE
  16. ROTIGOTINE [Suspect]
     Indication: PARKINSON'S DISEASE

REACTIONS (1)
  - NO ADVERSE EVENT [None]
